FAERS Safety Report 5680634-7 (Version None)
Quarter: 2008Q1

REPORT INFORMATION
  Report Type: 
  Country: None (occurrence: None)
  Receive Date: 20080326
  Receipt Date: 20080211
  Transmission Date: 20080703
  Serious: No
  Sender: FDA-Public Use
  Company Number: A0701006A

PATIENT
  Age: 61 Year
  Sex: Female

DRUGS (8)
  1. FLOVENT [Suspect]
     Indication: ASTHMA
     Dosage: 1PUFF TWICE PER DAY
     Route: 055
  2. PREMARIN [Concomitant]
  3. MINIPRESS [Concomitant]
  4. SYNTHROID [Concomitant]
  5. FORADIL [Concomitant]
  6. SINGULAIR [Concomitant]
  7. FLONASE [Concomitant]
  8. PREDNISONE TAB [Concomitant]

REACTIONS (3)
  - COUGH [None]
  - DRUG INEFFECTIVE [None]
  - PHARMACEUTICAL PRODUCT COMPLAINT [None]
